FAERS Safety Report 18979134 (Version 1)
Quarter: 2021Q1

REPORT INFORMATION
  Report Type: Spontaneous
  Country: DZ (occurrence: DZ)
  Receive Date: 20210308
  Receipt Date: 20210308
  Transmission Date: 20210420
  Serious: Yes (Hospitalization, Other)
  Sender: FDA-Public Use
  Company Number: DZ-HIKMA PHARMACEUTICALS USA INC.-DZ-H14001-21-00997

PATIENT
  Sex: Male

DRUGS (1)
  1. VETRAM [Suspect]
     Active Substance: LEVETIRACETAM
     Indication: PRODUCT USED FOR UNKNOWN INDICATION
     Route: 065

REACTIONS (1)
  - Status epilepticus [Unknown]
